FAERS Safety Report 6736418-1 (Version None)
Quarter: 2010Q2

REPORT INFORMATION
  Report Type: 
  Country: None (occurrence: None)
  Receive Date: 20100521
  Receipt Date: 20100513
  Transmission Date: 20101027
  Serious: Yes (Other)
  Sender: FDA-Public Use
  Company Number: US-MERCK-1004USA02825

PATIENT
  Age: 52 Year
  Sex: Female
  Weight: 62 kg

DRUGS (9)
  1. ZOCOR [Suspect]
     Indication: HYPERLIPIDAEMIA
     Route: 048
     Dates: start: 20100224, end: 20100413
  2. FIORICET [Concomitant]
     Indication: MIGRAINE
     Route: 048
  3. VICODIN [Concomitant]
     Indication: MIGRAINE
     Dosage: TAKE 1-2 TABS BY MOUTH EVERY 4 TO 6 HOURS AS NEEDED MAX: 8 TAB/24H
     Route: 048
  4. DILTIAZEM HYDROCHLORIDE [Concomitant]
     Route: 065
  5. CARDIZEM [Concomitant]
     Indication: MIGRAINE
     Route: 065
  6. SUMATRIPTAN SUCCINATE (IMITREX) [Concomitant]
     Dosage: 2-3 TIMES MONTHLY
     Route: 065
     Dates: end: 20100409
  7. ADVIL LIQUI-GELS [Concomitant]
     Indication: MIGRAINE
     Route: 065
  8. TREXIMET [Concomitant]
     Indication: MIGRAINE
     Route: 065
  9. MAXALT [Concomitant]
     Indication: MIGRAINE
     Dosage: MAY REPEAT DOSE IN 2 HOURS IF NEEDED.
     Route: 048

REACTIONS (6)
  - IDIOPATHIC THROMBOCYTOPENIC PURPURA [None]
  - MIGRAINE [None]
  - OEDEMA PERIPHERAL [None]
  - PALPITATIONS [None]
  - RHINITIS ALLERGIC [None]
  - THROMBOCYTOPENIA [None]
